FAERS Safety Report 5249671-0 (Version None)
Quarter: 2007Q1

REPORT INFORMATION
  Report Type: 
  Country: None (occurrence: None)
  Receive Date: 20070228
  Receipt Date: 20061019
  Transmission Date: 20070707
  Serious: No
  Sender: FDA-Public Use
  Company Number: US-GLAXOSMITHKLINE-A0612994A

PATIENT
  Age: 28 Year
  Sex: Female

DRUGS (3)
  1. IMITREX [Suspect]
     Indication: MIGRAINE
     Dosage: 6MG AS REQUIRED
     Route: 058
     Dates: start: 20060101
  2. TOPAMAX [Concomitant]
  3. DEPAKOTE [Concomitant]

REACTIONS (3)
  - DRUG INEFFECTIVE [None]
  - MALABSORPTION FROM INJECTION SITE [None]
  - PHARMACEUTICAL PRODUCT COMPLAINT [None]
